FAERS Safety Report 20651592 (Version 4)
Quarter: 2023Q2

REPORT INFORMATION
  Report Type: Spontaneous
  Country: FR (occurrence: FR)
  Receive Date: 20220330
  Receipt Date: 20230424
  Transmission Date: 20230721
  Serious: Yes (Life-Threatening, Hospitalization, Congenital Anomaly, Other)
  Sender: FDA-Public Use
  Company Number: FR-MLMSERVICE-20220314-3432693-1

PATIENT
  Age: 31 Week
  Sex: Male
  Weight: 1.26 kg

DRUGS (7)
  1. PERINDOPRIL [Suspect]
     Active Substance: PERINDOPRIL
     Indication: Product used for unknown indication
     Dosage: 10 MILLIGRAM, ONCE A DAY (MATERNAL EXPOSURE DURING PREGNANCY: 10 MG, QD)
     Route: 064
     Dates: start: 2013
  2. AZATHIOPRINE [Suspect]
     Active Substance: AZATHIOPRINE
     Indication: Product used for unknown indication
     Dosage: 50 MILLIGRAM, TWO TIMES A DAY, (MORNING AND EVENING)
     Route: 064
     Dates: start: 2013
  3. METHYLPREDNISOLONE [Suspect]
     Active Substance: METHYLPREDNISOLONE
     Indication: Product used for unknown indication
     Dosage: 4 MILLIGRAM, ONCE A DAY, (MORNING)
     Route: 064
     Dates: start: 2013
  4. PENICILLIN V [Suspect]
     Active Substance: PENICILLIN V
     Indication: Product used for unknown indication
     Dosage: 1000000 INTERNATIONAL UNIT, (MORNING AND EVENING)
     Route: 064
     Dates: start: 2013
  5. TACROLIMUS [Suspect]
     Active Substance: TACROLIMUS
     Indication: Product used for unknown indication
     Dosage: 1 MILLIGRAM, TWO TIMES A DAY, (MORNING AND EVENING)
     Route: 064
     Dates: start: 2013
  6. ASPIRIN [Concomitant]
     Active Substance: ASPIRIN
     Indication: Product used for unknown indication
     Dosage: 75 MILLIGRAM, ONCE A DAY
     Route: 064
     Dates: start: 2013
  7. PROPRANOLOL HYDROCHLORIDE [Concomitant]
     Active Substance: PROPRANOLOL HYDROCHLORIDE
     Indication: Product used for unknown indication
     Dosage: 40 MILLIGRAM, TWO TIMES A DAY, (MORNING AND EVENING)
     Route: 064
     Dates: start: 2013

REACTIONS (9)
  - Renal failure neonatal [Recovered/Resolved]
  - Premature baby [Unknown]
  - Nephropathy [Recovered/Resolved]
  - Foetal heart rate abnormal [Unknown]
  - Kidney enlargement [Recovered/Resolved]
  - Hypocalvaria [Unknown]
  - Low birth weight baby [Unknown]
  - Foetal exposure during pregnancy [Unknown]
  - Renal hypertrophy [Unknown]
